FAERS Safety Report 16953160 (Version 1)
Quarter: 2019Q4

REPORT INFORMATION
  Report Type: Spontaneous
  Country: TH (occurrence: TH)
  Receive Date: 20191023
  Receipt Date: 20191023
  Transmission Date: 20200122
  Serious: Yes (Disabling, Other)
  Sender: FDA-Public Use
  Company Number: TH-FRESENIUS KABI-FK201911623

PATIENT
  Age: 47 Year
  Sex: Male

DRUGS (4)
  1. CLOXACILLIN [Suspect]
     Active Substance: CLOXACILLIN
     Indication: PROPHYLAXIS
     Route: 042
  2. PREDNISOLONE. [Suspect]
     Active Substance: PREDNISOLONE
     Indication: PEMPHIGUS
     Dosage: UNKNOWN
     Route: 048
  3. DEXAMETHASONE INJECTION (MANUFACTURER UNKNOWN) [Suspect]
     Active Substance: DEXAMETHASONE
     Indication: PEMPHIGUS
     Route: 042
  4. IMIPENEM [Concomitant]
     Active Substance: IMIPENEM
     Indication: PROPHYLAXIS
     Route: 042

REACTIONS (2)
  - Aeromonas infection [Recovered/Resolved with Sequelae]
  - Panophthalmitis [Recovered/Resolved with Sequelae]
